FAERS Safety Report 18711145 (Version 1)
Quarter: 2021Q1

REPORT INFORMATION
  Report Type: Other
  Country: DE (occurrence: DE)
  Receive Date: 20210107
  Receipt Date: 20210107
  Transmission Date: 20210419
  Serious: Yes (Hospitalization)
  Sender: FDA-Public Use
  Company Number: DE-ROCHE-2664249

PATIENT
  Age: 64 Year
  Sex: Male

DRUGS (11)
  1. RITUXIMAB. [Suspect]
     Active Substance: RITUXIMAB
     Indication: RHEUMATOID ARTHRITIS
     Dosage: ON 14/NOV/2019, HE RECEIVED MOST RECENT DOSE OF RITUXIMAB PRIOR TO ADVERSE EVENT .
     Route: 065
     Dates: start: 201904
  2. ATORVASTATIN [Concomitant]
     Active Substance: ATORVASTATIN
  3. DULAGLUTIDE. [Concomitant]
     Active Substance: DULAGLUTIDE
  4. LANTUS [Concomitant]
     Active Substance: INSULIN GLARGINE
  5. LERCANIDIPINE [Concomitant]
     Active Substance: LERCANIDIPINE
  6. METHOTREXATE. [Suspect]
     Active Substance: METHOTREXATE
     Indication: RHEUMATOID ARTHRITIS
     Route: 065
     Dates: start: 201904, end: 202004
  7. ASPIRIN. [Concomitant]
     Active Substance: ASPIRIN
  8. FOLIC ACID. [Concomitant]
     Active Substance: FOLIC ACID
  9. METFORMIN [Concomitant]
     Active Substance: METFORMIN HYDROCHLORIDE
  10. LISPRO INSULIN [Concomitant]
     Active Substance: INSULIN LISPRO
  11. RAMIPRIL. [Concomitant]
     Active Substance: RAMIPRIL

REACTIONS (1)
  - Interstitial lung disease [Not Recovered/Not Resolved]

NARRATIVE: CASE EVENT DATE: 202004
